FAERS Safety Report 7740990-2 (Version None)
Quarter: 2011Q3

REPORT INFORMATION
  Report Type: 
  Country: None (occurrence: None)
  Receive Date: 20110909
  Receipt Date: 20110907
  Transmission Date: 20111222
  Serious: Yes (Life-Threatening, Hospitalization)
  Sender: FDA-Public Use
  Company Number: PT-AMGEN-PRTSP2011020441

PATIENT
  Age: 64 Year
  Sex: Female
  Weight: 82 kg

DRUGS (5)
  1. NPLATE [Suspect]
     Dosage: 10 MUG/KG, UNK
     Dates: start: 20110530, end: 20110801
  2. NPLATE [Suspect]
     Dosage: 6 MUG/KG, UNK
     Dates: start: 20110502
  3. NPLATE [Suspect]
     Dosage: 5 MUG/KG, UNK
     Dates: start: 20110404
  4. INSULIN [Concomitant]
  5. NPLATE [Suspect]
     Indication: IDIOPATHIC THROMBOCYTOPENIC PURPURA
     Dosage: 1 MUG/KG, QWK
     Dates: start: 20110314

REACTIONS (3)
  - HEADACHE [None]
  - DRUG INEFFECTIVE [None]
  - DIZZINESS [None]
